FAERS Safety Report 7309161-8 (Version None)
Quarter: 2011Q1

REPORT INFORMATION
  Report Type: 
  Country: None (occurrence: None)
  Receive Date: 20110223
  Receipt Date: 20110210
  Transmission Date: 20110831
  Serious: Yes (Other)
  Sender: FDA-Public Use
  Company Number: US-ELI_LILLY_AND_COMPANY-US201102004109

PATIENT
  Sex: Male

DRUGS (2)
  1. ALIMTA [Suspect]
     Dosage: 1000 MG, UNK
     Route: 042
     Dates: start: 20100917, end: 20110125
  2. CISPLATIN [Concomitant]
     Route: 042
     Dates: start: 20100917, end: 20110125

REACTIONS (1)
  - CONVULSION [None]
